FAERS Safety Report 5860424-2 (Version None)
Quarter: 2008Q3

REPORT INFORMATION
  Report Type: 
  Country: None (occurrence: None)
  Receive Date: 20080827
  Receipt Date: 20080826
  Transmission Date: 20090109
  Serious: Yes (Life-Threatening, Hospitalization)
  Sender: FDA-Public Use
  Company Number: ES-BOEHRINGER INGELHEIM GMBH, GERMANY-2008-ES-00625ES

PATIENT
  Age: 83 Year
  Sex: Female

DRUGS (9)
  1. MIRAPEX [Suspect]
     Indication: PARKINSON'S DISEASE
     Route: 048
     Dates: start: 20080526, end: 20080703
  2. PANTOPRAZOLE [Concomitant]
     Route: 048
  3. DIGOXIN [Concomitant]
     Route: 048
  4. BOI-K [Concomitant]
     Route: 048
  5. LEVOTHROID [Concomitant]
     Indication: HYPOTHYROIDISM
     Route: 048
  6. SEGURIL [Concomitant]
     Indication: CARDIAC FAILURE
     Route: 048
  7. SERETIDE [Concomitant]
     Dosage: 50MCG SALMETEROL  HYDROXINAAFTOATE+ 100MCG FLUTICASONE PROPIONATE/DAY
  8. SINTROM [Concomitant]
     Indication: CARDIAC VALVE PROSTHESIS USER
     Route: 048
  9. ZAMENE [Concomitant]
     Route: 048

REACTIONS (2)
  - ENCEPHALOPATHY [None]
  - HYPOTENSION [None]
